FAERS Safety Report 5526881-6 (Version None)
Quarter: 2007Q4

REPORT INFORMATION
  Report Type: 
  Country: None (occurrence: None)
  Receive Date: 20071127
  Receipt Date: 20071120
  Transmission Date: 20080405
  Serious: Yes (Hospitalization)
  Sender: FDA-Public Use
  Company Number: PHHO2007US02822

PATIENT
  Age: 58 Year
  Sex: Male

DRUGS (1)
  1. CERTICAN [Suspect]
     Indication: RENAL TRANSPLANT
     Dosage: 1440 MG DAILY
     Route: 048
     Dates: start: 20070123, end: 20070129

REACTIONS (3)
  - BACTERAEMIA [None]
  - PYREXIA [None]
  - VENTRICULAR TACHYCARDIA [None]
